FAERS Safety Report 5065532-4 (Version None)
Quarter: 2006Q3

REPORT INFORMATION
  Report Type: 
  Country: None (occurrence: None)
  Receive Date: 20060731
  Receipt Date: 20060413
  Transmission Date: 20061208
  Serious: Yes (Disabling)
  Sender: FDA-Public Use
  Company Number: JP-JPN-A200601221

PATIENT
  Age: 45 Year
  Sex: Male

DRUGS (7)
  1. ZEFIX [Suspect]
     Indication: HEPATIC CIRRHOSIS
     Dosage: 100MG PER DAY
     Route: 048
     Dates: start: 20050908, end: 20060328
  2. HEPSERA [Suspect]
     Indication: DRUG USE FOR UNKNOWN INDICATION
     Dosage: 10MG PER DAY
     Route: 048
     Dates: start: 20060328, end: 20060429
  3. GASTER D [Concomitant]
     Route: 048
  4. URSO [Concomitant]
     Route: 048
  5. MONILAC [Concomitant]
     Route: 048
  6. TAKEPRON [Concomitant]
     Route: 048
  7. TOUGHMAC E [Concomitant]
     Route: 048

REACTIONS (5)
  - ASTHENIA [None]
  - GRIP STRENGTH DECREASED [None]
  - HICCUPS [None]
  - HYPOAESTHESIA ORAL [None]
  - NAUSEA [None]
